FAERS Safety Report 4581681-9 (Version None)
Quarter: 2005Q1

REPORT INFORMATION
  Report Type: 
  Country: None (occurrence: None)
  Receive Date: 20050214
  Receipt Date: 20041202
  Transmission Date: 20050727
  Serious: No
  Sender: FDA-Public Use
  Company Number: US-GLAXOSMITHKLINE-A0537465A

PATIENT
  Age: 27 Year
  Sex: Female

DRUGS (3)
  1. LAMICTAL [Suspect]
     Indication: BIPOLAR DISORDER
     Dosage: 25MG PER DAY
     Route: 048
     Dates: start: 20041201
  2. REMERON [Concomitant]
  3. ATIVAN [Concomitant]

REACTIONS (5)
  - ANXIETY [None]
  - COLD SWEAT [None]
  - FATIGUE [None]
  - PSYCHOMOTOR HYPERACTIVITY [None]
  - YAWNING [None]
